FAERS Safety Report 8978762 (Version 2)
Quarter: 2013Q1

REPORT INFORMATION
  Report Type: Spontaneous
  Country: US (occurrence: US)
  Receive Date: 20121220
  Receipt Date: 20130116
  Transmission Date: 20140127
  Serious: Yes (Death, Hospitalization, Other)
  Sender: FDA-Public Use
  Company Number: US-BAXTER-2012BAX027796

PATIENT
  Age: 81 None
  Sex: Male

DRUGS (1)
  1. DIANEAL LOW CALCIUM [Suspect]
     Indication: PERITONEAL DIALYSIS
     Route: 033

REACTIONS (7)
  - Death [Fatal]
  - Myocardial infarction [Recovering/Resolving]
  - Osteoporosis [Unknown]
  - Asthenia [Unknown]
  - Loss of consciousness [Unknown]
  - Fall [Unknown]
  - Injury [Unknown]
